FAERS Safety Report 8814455 (Version 1)
Quarter: 2012Q4

REPORT INFORMATION
  Report Type: 
  Country: US (occurrence: US)
  Receive Date: 20120928
  Receipt Date: 20120928
  Transmission Date: 20130627
  Serious: No
  Sender: FDA-Public Use
  Company Number: US-PFIZER INC-2012240471

PATIENT
  Sex: Female

DRUGS (2)
  1. PRISTIQ [Suspect]
     Dosage: 100 mg, UNK
     Dates: end: 2012
  2. PRISTIQ [Suspect]
     Dosage: 50 mg, UNK
     Dates: start: 2012, end: 201208

REACTIONS (1)
  - Withdrawal syndrome [Unknown]
